FAERS Safety Report 16667044 (Version 2)
Quarter: 2019Q3

REPORT INFORMATION
  Report Type: Spontaneous
  Country: JP (occurrence: JP)
  Receive Date: 20190805
  Receipt Date: 20190904
  Transmission Date: 20191004
  Serious: Yes (Other)
  Sender: FDA-Public Use
  Company Number: JP-BAYER-2019-141274

PATIENT
  Age: 64 Year
  Sex: Male

DRUGS (7)
  1. ENTECAVIR OD [Concomitant]
  2. HEPAACT [Concomitant]
  3. ACETAMINOPHEN. [Concomitant]
     Active Substance: ACETAMINOPHEN
  4. NEXAVAR [Suspect]
     Active Substance: SORAFENIB
     Indication: HEPATOCELLULAR CARCINOMA
     Dosage: DAILY DOSE 800 MG
     Route: 048
  5. AMLODIPINE [Concomitant]
     Active Substance: AMLODIPINE BESYLATE
  6. REBAMIPIDE [Concomitant]
     Active Substance: REBAMIPIDE
  7. LOXOPROFEN [Concomitant]
     Active Substance: LOXOPROFEN

REACTIONS (2)
  - Drug ineffective [None]
  - Hepatocellular carcinoma [Not Recovered/Not Resolved]

NARRATIVE: CASE EVENT DATE: 20181107
